FAERS Safety Report 19447781 (Version 1)
Quarter: 2021Q2

REPORT INFORMATION
  Report Type: Spontaneous
  Country: US (occurrence: US)
  Receive Date: 20210621
  Receipt Date: 20210621
  Transmission Date: 20210717
  Serious: No
  Sender: FDA-Public Use
  Company Number: None

PATIENT
  Sex: Male

DRUGS (1)
  1. METHOTREXATE MDV (2ML/VL) MG/ML NOVAPLUS/HOSPIRA [Suspect]
     Active Substance: METHOTREXATE
     Indication: RHEUMATOID ARTHRITIS
     Route: 058
     Dates: start: 202010

REACTIONS (3)
  - Condition aggravated [None]
  - Joint swelling [None]
  - Arthralgia [None]
